FAERS Safety Report 23994974 (Version 1)
Quarter: 2024Q2

REPORT INFORMATION
  Report Type: Spontaneous
  Country: US (occurrence: US)
  Receive Date: 20240620
  Receipt Date: 20240620
  Transmission Date: 20240716
  Serious: No
  Sender: FDA-Public Use
  Company Number: US-Merck Healthcare KGaA-2024000726

PATIENT
  Sex: Male

DRUGS (3)
  1. BAVENCIO [Suspect]
     Active Substance: AVELUMAB
     Indication: Adenoid cystic carcinoma
  2. BAVENCIO [Suspect]
     Active Substance: AVELUMAB
     Dates: start: 202308
  3. AXITINIB [Suspect]
     Active Substance: AXITINIB
     Indication: Adenoid cystic carcinoma

REACTIONS (2)
  - Fatigue [Unknown]
  - Off label use [Unknown]
